FAERS Safety Report 11203642 (Version 3)
Quarter: 2016Q3

REPORT INFORMATION
  Report Type: Spontaneous
  Country: US (occurrence: US)
  Receive Date: 20150619
  Receipt Date: 20160727
  Transmission Date: 20161109
  Serious: Yes (Hospitalization, Other)
  Sender: FDA-Public Use
  Company Number: US-GLAXOSMITHKLINE-US2015086471

PATIENT
  Age: 75 Year
  Sex: Female

DRUGS (14)
  1. ALBUTEROL SULFATE/IPRATROPIUM BROMIDE NEBULIZER [Concomitant]
  2. SPIRONOLACTONE. [Concomitant]
     Active Substance: SPIRONOLACTONE
  3. SPIRIVA [Concomitant]
     Active Substance: TIOTROPIUM BROMIDE MONOHYDRATE
  4. ALPRAZOLAM. [Concomitant]
     Active Substance: ALPRAZOLAM
  5. ADVAIR HFA [Suspect]
     Active Substance: FLUTICASONE PROPIONATE\SALMETEROL XINAFOATE
     Indication: CHRONIC OBSTRUCTIVE PULMONARY DISEASE
     Dosage: 2 PUFF(S), BID
     Route: 055
     Dates: start: 2007
  6. MATZIM LA [Concomitant]
     Active Substance: DILTIAZEM HYDROCHLORIDE
  7. HYDROCODONE [Concomitant]
     Active Substance: HYDROCODONE
  8. XARELTO [Concomitant]
     Active Substance: RIVAROXABAN
  9. FUROSEMIDE. [Concomitant]
     Active Substance: FUROSEMIDE
  10. SINGULAIR [Concomitant]
     Active Substance: MONTELUKAST SODIUM
  11. RANITIDINE. [Concomitant]
     Active Substance: RANITIDINE
  12. ADVAIR HFA [Suspect]
     Active Substance: FLUTICASONE PROPIONATE\SALMETEROL XINAFOATE
     Indication: EMPHYSEMA
     Dosage: 2 PUFF(S), BID
     Route: 055
     Dates: start: 2007
  13. LIPITOR [Concomitant]
     Active Substance: ATORVASTATIN CALCIUM
  14. CELEXA [Concomitant]
     Active Substance: CITALOPRAM HYDROBROMIDE

REACTIONS (5)
  - Biopsy breast [Recovered/Resolved]
  - Atrial fibrillation [Recovered/Resolved]
  - Cardiac assistance device user [Unknown]
  - Hernia repair [Recovered/Resolved]
  - Lung infection pseudomonal [Recovered/Resolved]

NARRATIVE: CASE EVENT DATE: 20160720
